FAERS Safety Report 9387364 (Version 1)
Quarter: 2013Q3

REPORT INFORMATION
  Report Type: Spontaneous
  Country: US (occurrence: US)
  Receive Date: 20130708
  Receipt Date: 20130708
  Transmission Date: 20140515
  Serious: No
  Sender: FDA-Public Use
  Company Number: US-GLAXOSMITHKLINE-A1017045A

PATIENT
  Sex: 0

DRUGS (2)
  1. POTIGA [Suspect]
     Indication: CONVULSION
     Route: 048
  2. OTHER MEDICATIONS [Concomitant]
     Indication: CONVULSION

REACTIONS (1)
  - Somnolence [Unknown]
